FAERS Safety Report 18210139 (Version 1)
Quarter: 2020Q3

REPORT INFORMATION
  Report Type: Spontaneous
  Country: CA (occurrence: CA)
  Receive Date: 20200829
  Receipt Date: 20200829
  Transmission Date: 20201103
  Serious: Yes (Life-Threatening, Hospitalization, Disabling, Other)
  Sender: FDA-Public Use
  Company Number: CA-TEVA-2020-CA-1818497

PATIENT
  Age: 43 Year
  Sex: Male
  Weight: 82 kg

DRUGS (1)
  1. LEFLUNOMIDE. [Suspect]
     Active Substance: LEFLUNOMIDE
     Indication: SERONEGATIVE ARTHRITIS
     Dosage: 20 MILLIGRAM DAILY;

REACTIONS (3)
  - Biopsy bone marrow abnormal [Not Recovered/Not Resolved]
  - Erythroid maturation arrest [Not Recovered/Not Resolved]
  - Anaemia [Not Recovered/Not Resolved]
